FAERS Safety Report 4706191-7 (Version None)
Quarter: 2005Q2

REPORT INFORMATION
  Report Type: 
  Country: None (occurrence: None)
  Receive Date: 20050204
  Receipt Date: 20050204
  Transmission Date: 20051028
  Serious: Yes (Other)
  Sender: FDA-Public Use
  Company Number: None

PATIENT
  Age: 87 Year
  Sex: Female
  Weight: 79.8331 kg

DRUGS (2)
  1. PROCARDIA XL [Suspect]
     Indication: CORONARY ARTERY DISEASE
     Dosage: ONCE A DAY
     Dates: start: 19960101
  2. PROCARDIA XL [Suspect]
     Indication: HYPERTENSION
     Dosage: ONCE A DAY
     Dates: start: 19960101

REACTIONS (4)
  - BLOOD PRESSURE INADEQUATELY CONTROLLED [None]
  - DRUG INEFFECTIVE [None]
  - PHARMACEUTICAL PRODUCT COMPLAINT [None]
  - THERAPEUTIC RESPONSE UNEXPECTED WITH DRUG SUBSTITUTION [None]
